FAERS Safety Report 20572729 (Version 1)
Quarter: 2022Q1

REPORT INFORMATION
  Report Type: Report from Study
  Country: FR (occurrence: None)
  Receive Date: 20220309
  Receipt Date: 20220309
  Transmission Date: 20220424
  Serious: Yes (Other)
  Sender: FDA-Public Use
  Company Number: 2022A101452

PATIENT
  Age: 44 Year
  Sex: Male
  Weight: 49 kg

DRUGS (26)
  1. EVUSHELD [Suspect]
     Active Substance: CILGAVIMAB\TIXAGEVIMAB
     Indication: COVID-19 prophylaxis
     Route: 042
     Dates: start: 20220118, end: 20220118
  2. SOTROVIMAB [Suspect]
     Active Substance: SOTROVIMAB
     Indication: COVID-19
     Dosage: 500.0MG UNKNOWN
     Route: 041
     Dates: start: 20220203, end: 20220203
  3. METHOTREXATE [Concomitant]
     Active Substance: METHOTREXATE
     Indication: Immunomodulatory therapy
     Dosage: 7.5 MG ON FRIDAY
     Route: 065
  4. RUXOLITINIB [Concomitant]
     Active Substance: RUXOLITINIB
     Indication: Photopheresis
     Dosage: 5 MG IN THE MORNING AND IN THE EVENING, WEEKLY
     Route: 065
  5. CLAIRYG [Concomitant]
     Active Substance: HUMAN IMMUNOGLOBULIN G
     Indication: Infection
     Dosage: 20 G ON FIRST FRIDAY EVERY MONTH
     Route: 065
  6. NOXAFIL [Concomitant]
     Active Substance: POSACONAZOLE
     Indication: Infection
     Route: 065
  7. VALACYCLOVIR HYDROCHLORIDE [Concomitant]
     Active Substance: VALACYCLOVIR HYDROCHLORIDE
     Indication: Infection
     Dosage: 500 MG IN THE MORNING AND IN THE EVENING
     Route: 065
  8. PREVYMIS [Concomitant]
     Active Substance: LETERMOVIR
     Indication: Infection
     Dosage: 480 MG IN THE EVENING
     Route: 065
  9. BACTRIM [Concomitant]
     Active Substance: SULFAMETHOXAZOLE\TRIMETHOPRIM
     Indication: Infection
     Dosage: 800/160 MG MONDAY, WEDNESDAY, FRIDAY
     Route: 065
  10. PENICILLIN V [Concomitant]
     Active Substance: PENICILLIN V
     Indication: Infection
     Dosage: 1MUI IN THE MORNING AND IN THE EVENING
     Route: 065
  11. ELTROMBOPAG OLAMINE [Concomitant]
     Active Substance: ELTROMBOPAG OLAMINE
     Indication: Supplementation therapy
     Dosage: 100 MG IN THE MORNING
     Route: 065
  12. ARANESP [Concomitant]
     Active Substance: DARBEPOETIN ALFA
     Indication: Supplementation therapy
     Dosage: 300 UG ON WEDNESDAY
     Route: 065
  13. ACETAMINOPHEN [Concomitant]
     Active Substance: ACETAMINOPHEN
     Dosage: 1 G X 3/DAY IF NEEDED
     Route: 065
  14. OXYCONTIN [Concomitant]
     Active Substance: OXYCODONE HYDROCHLORIDE
     Dosage: 10 MG IN THE MORNING AND IN THE EVENING
     Route: 065
  15. CREON [Concomitant]
     Active Substance: PANCRELIPASE AMYLASE\PANCRELIPASE LIPASE\PANCRELIPASE PROTEASE
     Dosage: 25000 UI X 2/DAY + 10000UI/DAY
     Route: 065
  16. CALCIDOSE [Concomitant]
     Dosage: 50 MG IN THE MORNING AND IN THE EVENING
     Route: 065
  17. LEUCOVORIN CALCIUM [Concomitant]
     Active Substance: LEUCOVORIN CALCIUM
     Dosage: 50 MG ON SATURDAY
     Route: 065
  18. LEVOTHYROXINE [Concomitant]
     Active Substance: LEVOTHYROXINE
     Dosage: 44 UG IN THE MORNING
     Route: 065
  19. POTASSIUM CHLORIDE [Concomitant]
     Active Substance: POTASSIUM CHLORIDE
     Dosage: 5 G/DAY
     Route: 065
  20. ESCITALOPRAM OXALATE [Concomitant]
     Active Substance: ESCITALOPRAM OXALATE
     Dosage: 10 MG IN THE MORNING
     Route: 065
  21. AMITRIPTYLINE HYDROCHLORIDE [Concomitant]
     Active Substance: AMITRIPTYLINE HYDROCHLORIDE
     Dosage: 20 DROPS IN THE EVENING
     Route: 065
  22. MAGNEBE [Concomitant]
     Dosage: 8/DAY
     Route: 065
  23. ESOMEPRAZOLE [Concomitant]
     Active Substance: ESOMEPRAZOLE
     Dosage: 20 MG IN THE EVENING
     Route: 065
  24. CHOLECALCIFEROL [Concomitant]
     Active Substance: CHOLECALCIFEROL
     Dosage: 20 MG IN THE EVENING
     Route: 065
  25. BICAR-FUNGIZONE [Concomitant]
     Dosage: MOUTHWASH IN THE MORNING,NOON AND IN THE EVENING
     Route: 065
  26. REFRESH CELLUVISC [Concomitant]
     Active Substance: CARBOXYMETHYLCELLULOSE SODIUM
     Dosage: IN THE MORNING.
     Route: 065

REACTIONS (4)
  - Hepatic cytolysis [Recovering/Resolving]
  - Cholestasis [Not Recovered/Not Resolved]
  - Asymptomatic COVID-19 [Unknown]
  - Off label use [Unknown]

NARRATIVE: CASE EVENT DATE: 20220201
